FAERS Safety Report 6341929-7 (Version None)
Quarter: 2009Q3

REPORT INFORMATION
  Report Type: 
  Country: None (occurrence: None)
  Receive Date: 20090904
  Receipt Date: 20090901
  Transmission Date: 20100115
  Serious: Yes (Death, Other)
  Sender: FDA-Public Use
  Company Number: PHHY2009US36986

PATIENT
  Age: 45 Year
  Sex: Male

DRUGS (6)
  1. CYCLOSPORINE [Suspect]
     Indication: GRAFT VERSUS HOST DISEASE
     Dosage: UNK
  2. IMATINIB MESYLATE [Suspect]
     Indication: CHRONIC MYELOID LEUKAEMIA
     Dosage: UNK
     Dates: start: 20020101
  3. PREDNISONE TAB [Suspect]
     Indication: GRAFT VERSUS HOST DISEASE
  4. SIROLIMUS [Suspect]
     Indication: GRAFT VERSUS HOST DISEASE
  5. TACROLIMUS [Suspect]
     Indication: GRAFT VERSUS HOST DISEASE
  6. DACLIZUMAB [Suspect]
     Indication: GRAFT VERSUS HOST DISEASE

REACTIONS (4)
  - BACTERIAL SEPSIS [None]
  - CHRONIC HEPATITIS [None]
  - HEPATIC CIRRHOSIS [None]
  - HEPATITIS B [None]
